FAERS Safety Report 20850731 (Version 1)
Quarter: 2022Q2

REPORT INFORMATION
  Report Type: Spontaneous
  Country: RO (occurrence: RO)
  Receive Date: 20220519
  Receipt Date: 20220519
  Transmission Date: 20220721
  Serious: Yes (Other)
  Sender: FDA-Public Use
  Company Number: RO-ROCHE-3081442

PATIENT
  Age: 76 Year
  Sex: Female

DRUGS (9)
  1. METHOTREXATE [Suspect]
     Active Substance: METHOTREXATE
     Indication: Burkitt^s lymphoma stage IV
     Dosage: UNK
     Route: 065
  2. DOXORUBICIN [Suspect]
     Active Substance: DOXORUBICIN
     Indication: Burkitt^s lymphoma stage IV
     Dosage: UNK
     Route: 065
  3. PREDNISONE [Suspect]
     Active Substance: PREDNISONE
     Indication: Burkitt^s lymphoma stage IV
     Dosage: UNK
     Route: 065
  4. CYCLOPHOSPHAMIDE [Suspect]
     Active Substance: CYCLOPHOSPHAMIDE
     Indication: Burkitt^s lymphoma stage IV
     Dosage: UNK
     Route: 065
  5. ETOPOSIDE [Suspect]
     Active Substance: ETOPOSIDE
     Indication: Burkitt^s lymphoma stage IV
     Dosage: UNK
     Route: 065
  6. VINCRISTINE [Suspect]
     Active Substance: VINCRISTINE
     Indication: Burkitt^s lymphoma stage IV
     Dosage: UNK
     Route: 065
  7. DEXAMETHASONE [Suspect]
     Active Substance: DEXAMETHASONE
     Indication: Burkitt^s lymphoma stage IV
     Dosage: UNK
     Route: 065
  8. RITUXIMAB [Suspect]
     Active Substance: RITUXIMAB
     Indication: Burkitt^s lymphoma stage IV
     Dosage: UNK
     Route: 065
  9. OCTREOTIDE [Concomitant]
     Active Substance: OCTREOTIDE
     Indication: Pancreatic neuroendocrine tumour
     Dosage: UNK

REACTIONS (4)
  - Sepsis [Unknown]
  - Tumour lysis syndrome [Unknown]
  - Urinary tract infection [Unknown]
  - COVID-19 [Unknown]
